FAERS Safety Report 9831081 (Version 2)
Quarter: 2014Q1

REPORT INFORMATION
  Report Type: Report from Study
  Country: US (occurrence: US)
  Receive Date: 20140120
  Receipt Date: 20140206
  Transmission Date: 20141002
  Serious: Yes (Hospitalization)
  Sender: FDA-Public Use
  Company Number: US-ROCHE-1335541

PATIENT
  Age: 74 Year
  Sex: Female

DRUGS (5)
  1. XOLAIR [Suspect]
     Indication: RESPIRATORY DISORDER
     Route: 058
  2. ADVAIR DISKUS [Concomitant]
  3. LEVOTHYROXINE [Concomitant]
     Indication: THYROID DISORDER
     Route: 048
  4. NEXIUM [Concomitant]
     Route: 048
  5. PROLIA [Concomitant]
     Indication: OSTEOPOROSIS
     Route: 065

REACTIONS (3)
  - Fall [Unknown]
  - Upper limb fracture [Recovered/Resolved]
  - Femur fracture [Recovered/Resolved]
